FAERS Safety Report 17987848 (Version 1)
Quarter: 2020Q3

REPORT INFORMATION
  Report Type: Spontaneous
  Country: US (occurrence: US)
  Receive Date: 20200707
  Receipt Date: 20200707
  Transmission Date: 20201103
  Serious: Yes (Other)
  Sender: FDA-Public Use
  Company Number: US-SA-2020SA173430

PATIENT

DRUGS (11)
  1. IPRATROPIUM [Concomitant]
     Active Substance: IPRATROPIUM
  2. FLUTICASONE. [Concomitant]
     Active Substance: FLUTICASONE
  3. IRON [Concomitant]
     Active Substance: IRON
  4. LEVETIRACETAM. [Concomitant]
     Active Substance: LEVETIRACETAM
  5. VENTOLIN [Concomitant]
     Active Substance: ALBUTEROL SULFATE
  6. BREO ELLIPTA [Concomitant]
     Active Substance: FLUTICASONE FUROATE\VILANTEROL TRIFENATATE
     Dosage: INH 200?25
  7. LAMOTRIGINE. [Concomitant]
     Active Substance: LAMOTRIGINE
  8. DUPIXENT [Suspect]
     Active Substance: DUPILUMAB
     Indication: ASTHMA
     Dosage: 200 MG, QOW
     Route: 058
     Dates: start: 20200605
  9. MONTELUCAST [Concomitant]
     Active Substance: MONTELUKAST SODIUM
     Dosage: UNK
  10. PAROXETINE. [Concomitant]
     Active Substance: PAROXETINE
  11. FOLIC ACID. [Concomitant]
     Active Substance: FOLIC ACID

REACTIONS (2)
  - Loss of consciousness [Not Recovered/Not Resolved]
  - Dyspnoea [Not Recovered/Not Resolved]

NARRATIVE: CASE EVENT DATE: 20200627
